FAERS Safety Report 7284810-1 (Version None)
Quarter: 2011Q1

REPORT INFORMATION
  Report Type: 
  Country: None (occurrence: None)
  Receive Date: 20110210
  Receipt Date: 20110207
  Transmission Date: 20110831
  Serious: Yes (Other)
  Sender: FDA-Public Use
  Company Number: US-PFIZER INC-2011027852

PATIENT

DRUGS (1)
  1. CHANTIX [Suspect]

REACTIONS (4)
  - ANGER [None]
  - DEPRESSED MOOD [None]
  - AGITATION [None]
  - ARTHRALGIA [None]
